FAERS Safety Report 10370685 (Version 1)
Quarter: 2014Q1

REPORT INFORMATION
  Report Type: Spontaneous
  Country: US (occurrence: None)
  Receive Date: 20140306
  Receipt Date: 20140306
  Transmission Date: 20141002
  Serious: Yes (Other)
  Sender: FDA-Public Use
  Company Number: 163-21880-13071538

PATIENT
  Age: 66 Year
  Sex: Male
  Weight: 119.3 kg

DRUGS (6)
  1. REVLIMID (LENALIDOMIDE) (CAPSULES) [Suspect]
     Indication: PLASMA CELL MYELOMA
     Dosage: 25 MG, 21 IN 21 D, PO
     Route: 048
     Dates: start: 201202, end: 201307
  2. METOPROLOL (UNKNOWN) [Concomitant]
  3. LISINOPRIL (UNKNOWN) [Concomitant]
  4. FINASTERIDE (UNKNOWN) [Concomitant]
  5. LASIX (FUROSEMIDE) (UNKNOWN) [Concomitant]
  6. LEVOTHYROXINE (UNKNOWN) [Concomitant]

REACTIONS (3)
  - Pancytopenia [None]
  - Gastrointestinal disorder [None]
  - Fatigue [None]
